FAERS Safety Report 4453564-6 (Version None)
Quarter: 2004Q3

REPORT INFORMATION
  Report Type: 
  Country: None (occurrence: None)
  Receive Date: 20040920
  Receipt Date: 20040908
  Transmission Date: 20050211
  Serious: Yes (Death)
  Sender: FDA-Public Use
  Company Number: JP-JNJFOC-20040304432

PATIENT
  Sex: Male

DRUGS (19)
  1. FENTANYL [Suspect]
     Route: 062
     Dates: start: 20040202, end: 20040305
  2. FENTANYL [Suspect]
     Route: 062
     Dates: start: 20040202, end: 20040305
  3. FENTANYL [Suspect]
     Route: 062
     Dates: start: 20040202, end: 20040305
  4. FENTANYL [Suspect]
     Indication: CANCER PAIN
     Route: 062
     Dates: start: 20040202, end: 20040305
  5. PROTEINS, AMINO ACID AND PREPARATIONS [Concomitant]
     Route: 041
     Dates: start: 20040131, end: 20040305
  6. FAMOTIDINE [Concomitant]
     Route: 041
     Dates: start: 20040131, end: 20040305
  7. MIXED VITAMIN PREPARATIONS [Concomitant]
     Route: 041
     Dates: start: 20040131, end: 20040305
  8. MINERAL PREPARATIONS [Concomitant]
     Route: 041
     Dates: start: 20040131, end: 20040305
  9. 10% SODIUM CHLORIDE [Concomitant]
     Route: 041
     Dates: start: 20040131, end: 20040305
  10. BETAMETHASONE SODIUM PHOSPHATE [Concomitant]
     Route: 041
     Dates: start: 20040131, end: 20040211
  11. BETAMETHASONE SODIUM PHOSPHATE [Concomitant]
     Route: 041
     Dates: start: 20040131, end: 20040211
  12. BETAMETHASONE SODIUM PHOSPHATE [Concomitant]
     Indication: GASTRIC CANCER
     Route: 041
     Dates: start: 20040131, end: 20040211
  13. IRSOGLADINE MALEATE [Concomitant]
     Indication: STOMATITIS
     Route: 049
     Dates: start: 20040131, end: 20040305
  14. ALLOPURINOL [Concomitant]
     Indication: STOMATITIS
     Route: 049
     Dates: start: 20040131, end: 20040305
  15. SODIUM ALGINATE [Concomitant]
     Indication: STOMATITIS
     Route: 049
     Dates: start: 20040131, end: 20040305
  16. DICLOFENAC SODIUM [Concomitant]
     Dosage: DOSE: 50 - 200 MG DAILY
     Route: 054
  17. DICLOFENAC SODIUM [Concomitant]
     Indication: CANCER PAIN
     Route: 054
  18. MORPHINE HYDROCHLORIDE [Concomitant]
     Indication: CANCER PAIN
     Dosage: DOSE: 10 - 20 MG DAILY
     Route: 049
     Dates: start: 20040220, end: 20040225
  19. BUTYLSCOPOLAMINE BROMIDE [Concomitant]
     Route: 042
     Dates: start: 20040221, end: 20040228

REACTIONS (1)
  - MALIGNANT NEOPLASM PROGRESSION [None]
